FAERS Safety Report 4889325-3 (Version None)
Quarter: 2006Q1

REPORT INFORMATION
  Report Type: 
  Country: None (occurrence: None)
  Receive Date: 20060120
  Receipt Date: 20060120
  Transmission Date: 20060701
  Serious: Yes (Hospitalization)
  Sender: FDA-Public Use
  Company Number: None

PATIENT
  Age: 76 Year
  Sex: Male

DRUGS (1)
  1. ESKALITH [Suspect]
     Indication: BIPOLAR DISORDER

REACTIONS (3)
  - DELIRIUM [None]
  - THERAPEUTIC AGENT TOXICITY [None]
  - TREMOR [None]
